FAERS Safety Report 8281125-X (Version None)
Quarter: 2012Q2

REPORT INFORMATION
  Report Type: 
  Country: None (occurrence: None)
  Receive Date: 20120413
  Receipt Date: 20120404
  Transmission Date: 20120825
  Serious: Yes (Hospitalization, Other)
  Sender: FDA-Public Use
  Company Number: US-BIOGENIDEC-2008BI002198

PATIENT
  Sex: Female

DRUGS (26)
  1. PILOCARPINE [Concomitant]
  2. METHADONE HCL [Concomitant]
  3. XANAX [Concomitant]
  4. HYDROXYZINE [Concomitant]
  5. PROTONIX [Concomitant]
  6. NAPROXEN [Concomitant]
  7. METHADONE HCL [Concomitant]
  8. PROZAC [Concomitant]
  9. SENOKOT [Concomitant]
  10. NIASPAN [Concomitant]
  11. AVONEX [Suspect]
     Route: 030
     Dates: start: 20030101, end: 20120201
  12. STRATTERA [Concomitant]
  13. NORVASC [Concomitant]
  14. NEURONTIN [Concomitant]
  15. XANAX [Concomitant]
  16. AVONEX [Suspect]
     Indication: MULTIPLE SCLEROSIS
     Route: 030
     Dates: start: 19960503, end: 20030101
  17. PRILOSEC [Concomitant]
     Indication: DYSPEPSIA
  18. AMITRIPTYLINE HYDROCHLORIDE [Concomitant]
  19. ALPRAZOLAM [Concomitant]
  20. FLUCONAZOLE [Concomitant]
  21. GABAPENTIN [Concomitant]
  22. NEURONTIN [Concomitant]
  23. HYDROXYZINE [Concomitant]
  24. FOSAMAX [Concomitant]
  25. AMANTADINE HCL [Concomitant]
  26. LISINOPRIL [Concomitant]

REACTIONS (24)
  - MENTAL STATUS CHANGES [None]
  - DRUG INTERACTION [None]
  - OVERDOSE [None]
  - DIZZINESS [None]
  - HYPERTENSION [None]
  - CEREBROVASCULAR ACCIDENT [None]
  - URINARY TRACT INFECTION [None]
  - MOBILITY DECREASED [None]
  - CONVULSION [None]
  - DEEP VEIN THROMBOSIS [None]
  - ATRIAL SEPTAL DEFECT [None]
  - BASAL GANGLIA STROKE [None]
  - BRONCHITIS [None]
  - UPPER RESPIRATORY TRACT INFECTION [None]
  - EMPHYSEMA [None]
  - SKIN ULCER [None]
  - COLONIC POLYP [None]
  - GASTRIC HAEMORRHAGE [None]
  - SINUSITIS [None]
  - MYOCARDIAL INFARCTION [None]
  - DRUG DETOXIFICATION [None]
  - GASTRITIS EROSIVE [None]
  - BACK PAIN [None]
  - INTERNATIONAL NORMALISED RATIO ABNORMAL [None]
